FAERS Safety Report 9540281 (Version 2)
Quarter: 2013Q4

REPORT INFORMATION
  Report Type: Spontaneous
  Country: JP (occurrence: JP)
  Receive Date: 20130920
  Receipt Date: 20131107
  Transmission Date: 20140711
  Serious: Yes (Other)
  Sender: FDA-Public Use
  Company Number: JP-ASTRAZENECA-2013SE69180

PATIENT
  Age: 70 Year
  Sex: Male
  Weight: 64 kg

DRUGS (4)
  1. PROPOFOL (NON AZ PRODUCT) [Suspect]
     Indication: INDUCTION OF ANAESTHESIA
     Route: 042
  2. FENTANYL [Suspect]
     Indication: INDUCTION OF ANAESTHESIA
     Route: 042
  3. ROCURONIUM [Concomitant]
     Indication: INDUCTION OF ANAESTHESIA
     Route: 042
  4. SEVOFLURANE [Concomitant]
     Indication: MAINTENANCE OF ANAESTHESIA
     Route: 055

REACTIONS (4)
  - Electrocardiogram ST segment depression [Recovered/Resolved]
  - Atelectasis [Unknown]
  - Interstitial lung disease [Unknown]
  - Pulmonary oedema [Unknown]
